FAERS Safety Report 6698426-9 (Version None)
Quarter: 2010Q2

REPORT INFORMATION
  Report Type: 
  Country: None (occurrence: None)
  Receive Date: 20100427
  Receipt Date: 20100415
  Transmission Date: 20101027
  Serious: Yes (Other)
  Sender: FDA-Public Use
  Company Number: IE-ROCHE-697767

PATIENT
  Sex: Female

DRUGS (1)
  1. MIRCERA [Suspect]
     Route: 058

REACTIONS (2)
  - FEELING HOT [None]
  - RASH [None]
